FAERS Safety Report 5979618-0 (Version None)
Quarter: 2008Q4

REPORT INFORMATION
  Report Type: 
  Country: None (occurrence: None)
  Receive Date: 20081204
  Receipt Date: 20081124
  Transmission Date: 20090506
  Serious: Yes (Death)
  Sender: FDA-Public Use
  Company Number: US-WATSON-2008-06977

PATIENT

DRUGS (1)
  1. FIORICET [Suspect]
     Indication: OVERDOSE
     Dosage: 50 G ACETAMINOPHEN, SINGLE
     Route: 048

REACTIONS (3)
  - ACUTE HEPATIC FAILURE [None]
  - CARDIOTOXICITY [None]
  - POISONING [None]
